FAERS Safety Report 5699765-0 (Version None)
Quarter: 2008Q2

REPORT INFORMATION
  Report Type: 
  Country: None (occurrence: None)
  Receive Date: 20080408
  Receipt Date: 20080408
  Transmission Date: 20081010
  Serious: Yes (Other)
  Sender: FDA-Public Use
  Company Number: None

PATIENT
  Age: 42 Year
  Sex: Male
  Weight: 90.7194 kg

DRUGS (1)
  1. VYTORIN [Suspect]
     Indication: BLOOD CHOLESTEROL INCREASED
     Dosage: 1 EVERYDAY PO; 3 - 6 MONTHS
     Route: 048
     Dates: start: 20070828, end: 20080229

REACTIONS (2)
  - ARTHRALGIA [None]
  - MEMORY IMPAIRMENT [None]
